FAERS Safety Report 4751346-9 (Version None)
Quarter: 2005Q3

REPORT INFORMATION
  Report Type: 
  Country: None (occurrence: None)
  Receive Date: 20050823
  Receipt Date: 20050823
  Transmission Date: 20060218
  Serious: Yes (Other)
  Sender: FDA-Public Use
  Company Number: None

PATIENT
  Age: 53 Year
  Sex: Male

DRUGS (1)
  1. NICOTINE [Suspect]
     Indication: SMOKING CESSATION THERAPY
     Dosage: 21MG DAILY TOP
     Route: 061
     Dates: start: 20050807, end: 20050810

REACTIONS (2)
  - APPLICATION SITE REACTION [None]
  - THERAPEUTIC RESPONSE UNEXPECTED [None]
